FAERS Safety Report 6748760-9 (Version None)
Quarter: 2010Q2

REPORT INFORMATION
  Report Type: 
  Country: None (occurrence: None)
  Receive Date: 20100601
  Receipt Date: 20100519
  Transmission Date: 20101027
  Serious: Yes (Other)
  Sender: FDA-Public Use
  Company Number: PHFR2010GB00712

PATIENT
  Sex: Female

DRUGS (1)
  1. NEORAL [Suspect]
     Indication: PSORIASIS
     Dosage: UNK
     Route: 048

REACTIONS (1)
  - TONSILLAR DISORDER [None]
